FAERS Safety Report 7552116-9 (Version None)
Quarter: 2011Q2

REPORT INFORMATION
  Report Type: 
  Country: None (occurrence: None)
  Receive Date: 20110616
  Receipt Date: 20110603
  Transmission Date: 20111010
  Serious: Yes (Other)
  Sender: FDA-Public Use
  Company Number: PHHY2011DE39406

PATIENT
  Age: 59 Year
  Sex: Female
  Weight: 54 kg

DRUGS (5)
  1. SANDOSTATIN [Suspect]
     Dosage: 200 UG, DAILY
  2. CREON [Concomitant]
     Indication: PANCREATECTOMY
     Dosage: ON DEMAND
     Route: 048
     Dates: start: 20101015
  3. SANDOSTATIN [Suspect]
     Dosage: 50 UG, UNK
     Dates: start: 20110202
  4. OMEPRAZOLE [Suspect]
     Dosage: 40 MG, DAILY
     Route: 048
     Dates: start: 20101015
  5. SANDOSTATIN [Suspect]
     Indication: PANCREATIC NEUROENDOCRINE TUMOUR
     Dosage: 50 UG, DAILY
     Dates: start: 20110101

REACTIONS (5)
  - ABDOMINAL WALL DISORDER [None]
  - FLUSHING [None]
  - ABDOMINAL PAIN [None]
  - ACUTE ABDOMEN [None]
  - DIARRHOEA [None]
